FAERS Safety Report 25614344 (Version 1)
Quarter: 2025Q3

REPORT INFORMATION
  Report Type: Spontaneous
  Country: JP (occurrence: None)
  Receive Date: 20250728
  Receipt Date: 20250728
  Transmission Date: 20251021
  Serious: Yes (Hospitalization, Other)
  Sender: AAVIS PHARMACEUTICALS
  Company Number: JP-AVS-000144

PATIENT
  Age: 60 Year
  Sex: Female

DRUGS (5)
  1. TERBINAFINE [Suspect]
     Active Substance: TERBINAFINE
     Indication: Dermatophytosis
     Route: 065
  2. KETOCONAZOLE [Concomitant]
     Active Substance: KETOCONAZOLE
     Indication: Dermatophytosis
     Route: 065
  3. LULICONAZOLE [Concomitant]
     Active Substance: LULICONAZOLE
     Indication: Dermatophytosis
     Route: 065
  4. LANOCONAZOLE [Concomitant]
     Active Substance: LANOCONAZOLE
     Indication: Dermatophytosis
     Route: 065
  5. TERBINAFINE [Suspect]
     Active Substance: TERBINAFINE
     Indication: Dermatophytosis
     Route: 048

REACTIONS (3)
  - Drug ineffective [Unknown]
  - Drug resistance [Unknown]
  - Trichophytic granuloma [Recovered/Resolved]

NARRATIVE: CASE EVENT DATE: 20200101
